FAERS Safety Report 8520056-4 (Version None)
Quarter: 2012Q2

REPORT INFORMATION
  Report Type: 
  Country: None (occurrence: None)
  Receive Date: 20120406
  Receipt Date: 20100904
  Transmission Date: 20120825
  Serious: Yes (Other)
  Sender: FDA-Public Use
  Company Number: PHHY2010US59370

PATIENT
  Age: 39 Year
  Sex: Female

DRUGS (1)
  1. TASIGNA [Suspect]
     Indication: CHRONIC MYELOID LEUKAEMIA
     Dosage: 200 MG EVERY OTHER DAY
     Dates: start: 20100904

REACTIONS (2)
  - PLATELET COUNT DECREASED [None]
  - BLOOD PRODUCT TRANSFUSION [None]
